FAERS Safety Report 25975586 (Version 2)
Quarter: 2025Q4

REPORT INFORMATION
  Report Type: Spontaneous
  Country: JP (occurrence: JP)
  Receive Date: 20251029
  Receipt Date: 20251205
  Transmission Date: 20260118
  Serious: Yes (Other)
  Sender: AMGEN
  Company Number: JP-AMGEN-JPNSP2025210693

PATIENT
  Age: 8 Decade
  Sex: Male

DRUGS (1)
  1. IMDELLTRA [Suspect]
     Active Substance: TARLATAMAB-DLLE
     Indication: Small cell lung cancer
     Dosage: 1 MILLILITER, INJECTION
     Route: 040

REACTIONS (2)
  - Ascites [Recovered/Resolved]
  - Cytokine release syndrome [Recovered/Resolved]
